FAERS Safety Report 17109551 (Version 2)
Quarter: 2019Q4

REPORT INFORMATION
  Report Type: Spontaneous
  Country: JP (occurrence: JP)
  Receive Date: 20191204
  Receipt Date: 20191213
  Transmission Date: 20200122
  Serious: Yes (Hospitalization, Other)
  Sender: FDA-Public Use
  Company Number: JP-BRISTOL-MYERS SQUIBB COMPANY-BMS-2019-115701

PATIENT
  Age: 8 Decade
  Sex: Male

DRUGS (2)
  1. DIURETIC [HYDROCHLOROTHIAZIDE] [Concomitant]
     Indication: CARDIAC FAILURE
     Dosage: UNK
     Route: 065
  2. ELIQUIS [Suspect]
     Active Substance: APIXABAN
     Indication: PRODUCT USED FOR UNKNOWN INDICATION
     Dosage: 2.5 MILLIGRAM, BID
     Route: 065

REACTIONS (3)
  - Cardiac failure [Unknown]
  - Prescribed underdose [Unknown]
  - Cerebral infarction [Recovering/Resolving]
